FAERS Safety Report 15454083 (Version 1)
Quarter: 2018Q4

REPORT INFORMATION
  Report Type: Spontaneous
  Country: US (occurrence: US)
  Receive Date: 20181002
  Receipt Date: 20181002
  Transmission Date: 20190204
  Serious: Yes (Hospitalization, Other)
  Sender: FDA-Public Use
  Company Number: US-APOTEX-2018AP021485

PATIENT
  Age: 25 Year
  Sex: Female
  Weight: 111 kg

DRUGS (4)
  1. ESCITALOPRAM OXALATE. [Suspect]
     Active Substance: ESCITALOPRAM OXALATE
     Indication: PRODUCT USED FOR UNKNOWN INDICATION
     Dosage: UNK
     Route: 065
  2. MIDAZOLAM [Suspect]
     Active Substance: MIDAZOLAM HYDROCHLORIDE
     Indication: PRODUCT USED FOR UNKNOWN INDICATION
     Dosage: UNK
     Route: 065
  3. PROPOFOL. [Suspect]
     Active Substance: PROPOFOL
     Indication: PRODUCT USED FOR UNKNOWN INDICATION
     Dosage: UNK
     Route: 065
  4. LAMOTRIGINE. [Suspect]
     Active Substance: LAMOTRIGINE
     Indication: PRODUCT USED FOR UNKNOWN INDICATION
     Dosage: UNK
     Route: 065

REACTIONS (16)
  - Agitation [Recovering/Resolving]
  - Electrocardiogram QRS complex prolonged [Recovered/Resolved]
  - Clonus [Recovering/Resolving]
  - Somnolence [Recovering/Resolving]
  - Acute respiratory distress syndrome [Recovering/Resolving]
  - Unresponsive to stimuli [Recovering/Resolving]
  - Drug level above therapeutic [Recovering/Resolving]
  - Drug ineffective [Unknown]
  - Muscle rigidity [Recovering/Resolving]
  - Pneumonia aspiration [Recovering/Resolving]
  - Tachycardia [Recovering/Resolving]
  - Bundle branch block left [Recovered/Resolved]
  - Overdose [Unknown]
  - Hypotension [Recovering/Resolving]
  - Hyperreflexia [Recovering/Resolving]
  - Rhabdomyolysis [Recovering/Resolving]
